FAERS Safety Report 24029574 (Version 1)
Quarter: 2024Q2

REPORT INFORMATION
  Report Type: Spontaneous
  Country: US (occurrence: None)
  Receive Date: 20240628
  Receipt Date: 20240628
  Transmission Date: 20240716
  Serious: Yes (Hospitalization)
  Sender: FDA-Public Use
  Company Number: None

PATIENT
  Sex: Male

DRUGS (1)
  1. CYCLOPHOSPHAMIDE [Suspect]
     Active Substance: CYCLOPHOSPHAMIDE
     Indication: Generalised oedema
     Dosage: FREQ: TAKE 1 TABLET BY MOUTH DAILY, SWALLOW WHOLE. DO NOT CUT, CHEW, OR CRUSH.
     Route: 048
     Dates: start: 20230902

REACTIONS (2)
  - Myocardial infarction [None]
  - Cerebral haemorrhage [None]
